FAERS Safety Report 24540374 (Version 1)
Quarter: 2024Q4

REPORT INFORMATION
  Report Type: Spontaneous
  Country: US (occurrence: None)
  Receive Date: 20241023
  Receipt Date: 20241023
  Transmission Date: 20250114
  Serious: Yes (Hospitalization)
  Sender: Public
  Company Number: None

PATIENT
  Age: 57 Year
  Sex: Female
  Weight: 63 kg

DRUGS (6)
  1. PROLIA [Suspect]
     Active Substance: DENOSUMAB
     Indication: Osteoporosis
     Dosage: OTHER FREQUENCY : EVERY 6 MONTHS;?
     Route: 030
     Dates: start: 20231115
  2. ZOLPIDEM [Concomitant]
  3. CALCIUM [Concomitant]
     Active Substance: CALCIUM
  4. VIT D [Concomitant]
  5. ZINC [Concomitant]
  6. CYANOCOBALAMIN\DEXPANTHENOL\NIACINAMIDE\PYRIDOXINE HYDROCHLORIDE\RIBOF [Concomitant]
     Active Substance: CYANOCOBALAMIN\DEXPANTHENOL\NIACINAMIDE\PYRIDOXINE HYDROCHLORIDE\RIBOFLAVIN 5^-PHOSPHATE SODIUM\THIA

REACTIONS (10)
  - Vertigo [None]
  - Vomiting [None]
  - Muscle contractions involuntary [None]
  - Hypoaesthesia [None]
  - Blood phosphorus decreased [None]
  - Blood potassium decreased [None]
  - Blood magnesium decreased [None]
  - Hyperventilation [None]
  - Respiratory acidosis [None]
  - Pain in extremity [None]

NARRATIVE: CASE EVENT DATE: 20240721
